FAERS Safety Report 6589307-X (Version None)
Quarter: 2010Q1

REPORT INFORMATION
  Report Type: 
  Country: None (occurrence: None)
  Receive Date: 20100205
  Receipt Date: 20100121
  Transmission Date: 20100710
  Serious: Yes (Death)
  Sender: FDA-Public Use
  Company Number: AUR-APL-2010-00310

PATIENT
  Age: 75 Year
  Sex: Female

DRUGS (2)
  1. MIRTAZAPINE [Suspect]
     Indication: DEPRESSION
     Dosage: DAILY - ORAL
     Route: 048
  2. LORAZEPAM [Suspect]
     Indication: RESTLESSNESS
     Dosage: TID - ORAL
     Route: 048
     Dates: start: 20090811

REACTIONS (5)
  - ARRHYTHMIA [None]
  - C-REACTIVE PROTEIN INCREASED [None]
  - ELECTROCARDIOGRAM QT PROLONGED [None]
  - HYPOKALAEMIA [None]
  - SUDDEN DEATH [None]
